FAERS Safety Report 9688304 (Version 3)
Quarter: 2014Q1

REPORT INFORMATION
  Report Type: Spontaneous
  Country: FR (occurrence: FR)
  Receive Date: 20131114
  Receipt Date: 20140214
  Transmission Date: 20141002
  Serious: Yes (Congenital Anomaly, Other)
  Sender: FDA-Public Use
  Company Number: FR-EISAI INC-E3810-06770-SPO-FR

PATIENT
  Sex: 0

DRUGS (2)
  1. PARIET (RABEPRAZOLE) [Suspect]
     Indication: EXPOSURE DURING PREGNANCY
     Dosage: UNKNOWN
     Route: 064
     Dates: start: 20130504, end: 20130603
  2. PINAVERIUM BROMIDE [Suspect]
     Indication: EXPOSURE DURING PREGNANCY
     Dosage: UNKNOWN
     Route: 064
     Dates: start: 20130602, end: 20130603

REACTIONS (11)
  - Ventricular septal defect [Unknown]
  - Diaphragmatic hernia [Unknown]
  - Foetal growth restriction [Unknown]
  - Bicuspid aortic valve [Unknown]
  - Renal disorder [Unknown]
  - Premature baby [Not Recovered/Not Resolved]
  - Respiratory distress [Unknown]
  - Coarctation of the aorta [Unknown]
  - Cleft palate [Not Recovered/Not Resolved]
  - Jaundice neonatal [Unknown]
  - Foetal exposure during pregnancy [Recovered/Resolved]
